FAERS Safety Report 4952005-X (Version None)
Quarter: 2006Q1

REPORT INFORMATION
  Report Type: 
  Country: None (occurrence: None)
  Receive Date: 20060320
  Receipt Date: 20060308
  Transmission Date: 20060701
  Serious: Yes (Hospitalization)
  Sender: FDA-Public Use
  Company Number: 2006033948

PATIENT
  Age: 49 Year
  Sex: Female

DRUGS (3)
  1. ZOLOFT [Suspect]
     Indication: DEPRESSION
     Dosage: 150 MG (1 D) ,ORAL
     Route: 048
  2. INSULIN [Concomitant]
  3. LAMICTAL [Concomitant]

REACTIONS (2)
  - CONVULSION [None]
  - VISUAL DISTURBANCE [None]
